FAERS Safety Report 8533600-8 (Version None)
Quarter: 2012Q3

REPORT INFORMATION
  Report Type: 
  Country: None (occurrence: None)
  Receive Date: 20120712
  Receipt Date: 20120629
  Transmission Date: 20120928
  Serious: Yes (Other)
  Sender: FDA-Public Use
  Company Number: IMP_05933_2012

PATIENT
  Age: 78 Year
  Sex: Female

DRUGS (5)
  1. OMEPRAZOLE [Suspect]
     Indication: TEMPORAL ARTERITIS
     Dosage: (20 MG QD)
  2. PREDNISOLONE [Concomitant]
  3. ATENOLOL [Concomitant]
  4. ISOSORBIDE MONONITRATE [Concomitant]
  5. SIMVASTATIN [Concomitant]

REACTIONS (8)
  - SKIN DEGENERATIVE DISORDER [None]
  - ANTINUCLEAR ANTIBODY POSITIVE [None]
  - SCAB [None]
  - PAIN OF SKIN [None]
  - EPIDERMAL NECROSIS [None]
  - LUPUS-LIKE SYNDROME [None]
  - LICHENOID KERATOSIS [None]
  - RASH [None]
